FAERS Safety Report 7422890-0 (Version None)
Quarter: 2011Q2

REPORT INFORMATION
  Report Type: 
  Country: None (occurrence: None)
  Receive Date: 20110419
  Receipt Date: 20110411
  Transmission Date: 20111010
  Serious: Yes (Hospitalization)
  Sender: FDA-Public Use
  Company Number: US-SANOFI-AVENTIS-2011SA021131

PATIENT
  Age: 59 Year
  Sex: Female

DRUGS (1)
  1. OFORTA [Suspect]
     Route: 048
     Dates: start: 20110101

REACTIONS (4)
  - DYSPNOEA [None]
  - PLEURAL EFFUSION [None]
  - BONE PAIN [None]
  - PYREXIA [None]
